FAERS Safety Report 14002942 (Version 1)
Quarter: 2017Q3

REPORT INFORMATION
  Report Type: Spontaneous
  Country: US (occurrence: US)
  Receive Date: 20170922
  Receipt Date: 20170922
  Transmission Date: 20171128
  Serious: No
  Sender: FDA-Public Use
  Company Number: US-DRREDDYS-USA/USA/17/0086453

PATIENT
  Sex: Female
  Weight: 96.16 kg

DRUGS (1)
  1. FLUCONAZOLE 200 MG [Suspect]
     Active Substance: FLUCONAZOLE
     Indication: HISTOPLASMOSIS
     Route: 048
     Dates: start: 201607, end: 20170104

REACTIONS (2)
  - Nausea [Recovered/Resolved]
  - Alopecia [Unknown]
